FAERS Safety Report 6335777-1 (Version None)
Quarter: 2009Q3

REPORT INFORMATION
  Report Type: 
  Country: None (occurrence: None)
  Receive Date: 20090828
  Receipt Date: 20090825
  Transmission Date: 20100115
  Serious: Yes (Hospitalization)
  Sender: FDA-Public Use
  Company Number: 8050703

PATIENT
  Sex: Female

DRUGS (5)
  1. KEPPRA [Suspect]
     Dates: end: 20080101
  2. CHOLESTYRAMINE [Concomitant]
  3. TRILEPTAL [Concomitant]
  4. NEURONTIN [Concomitant]
  5. KLONOPIN [Concomitant]

REACTIONS (3)
  - ABNORMAL BEHAVIOUR [None]
  - DIPLOPIA [None]
  - GALLBLADDER DISORDER [None]
